FAERS Safety Report 10260076 (Version 2)
Quarter: 2014Q2

REPORT INFORMATION
  Report Type: Other
  Country: US (occurrence: US)
  Receive Date: 20140625
  Receipt Date: 20140625
  Transmission Date: 20141212
  Serious: Yes (Hospitalization, Other)
  Sender: FDA-Public Use
  Company Number: US-GSKPPD-2014GSK000021

PATIENT
  Age: 53 Year
  Sex: Female

DRUGS (2)
  1. AVANDIA [Suspect]
     Indication: DIABETES MELLITUS
     Route: 048
     Dates: start: 2005, end: 2010
  2. ASPIRIN [Concomitant]
     Route: 048

REACTIONS (2)
  - Cardiac failure congestive [None]
  - Cerebrovascular accident [Recovered/Resolved]
